FAERS Safety Report 9521433 (Version 1)
Quarter: 2013Q1

REPORT INFORMATION
  Report Type: Spontaneous
  Country: US (occurrence: None)
  Receive Date: 20130305
  Receipt Date: 20130305
  Transmission Date: 20140127
  Serious: Yes (Other)
  Sender: FDA-Public Use
  Company Number: 163-21880-12073193

PATIENT
  Age: 68 Year
  Sex: Female

DRUGS (2)
  1. REVLIMID (LENALIDOMIDE) (CAPSULES) [Suspect]
     Indication: MYELODYSPLASTIC SYNDROME
     Dosage: 10 MG, 21 IN 21 D, PO
     Route: 048
     Dates: start: 20110825, end: 2012
  2. MULTIVITAMINS WITH MINERALS (MULTIVITAMINS WITH MINERALS) (UNKNOWN) [Concomitant]

REACTIONS (2)
  - Myelodysplastic syndrome [None]
  - Disease progression [None]
